FAERS Safety Report 5793425-3 (Version None)
Quarter: 2008Q2

REPORT INFORMATION
  Report Type: 
  Country: None (occurrence: None)
  Receive Date: 20080627
  Receipt Date: 20080619
  Transmission Date: 20081010
  Serious: Yes (Hospitalization)
  Sender: FDA-Public Use
  Company Number: CH-JNJFOC-20080505545

PATIENT
  Age: 71 Year
  Sex: Female

DRUGS (7)
  1. DOXORUBICIN HCL [Suspect]
     Indication: BREAST CANCER METASTATIC
     Route: 042
     Dates: start: 20071220, end: 20080519
  2. BEVACIZUMAB [Suspect]
     Indication: BREAST CANCER METASTATIC
     Route: 042
  3. ASPIRIN [Concomitant]
     Route: 048
  4. NORVASC [Concomitant]
     Route: 048
  5. ZESTORETIC [Concomitant]
     Route: 048
  6. CREON [Concomitant]
     Route: 048
  7. HUMALOG [Concomitant]
     Route: 058

REACTIONS (1)
  - MYOCARDIAL ISCHAEMIA [None]
